FAERS Safety Report 5381410-5 (Version None)
Quarter: 2007Q3

REPORT INFORMATION
  Report Type: 
  Country: None (occurrence: None)
  Receive Date: 20070709
  Receipt Date: 20070628
  Transmission Date: 20080115
  Serious: Yes (Life-Threatening, Hospitalization)
  Sender: FDA-Public Use
  Company Number: US-JNJFOC-20070700160

PATIENT
  Sex: Female
  Weight: 63.5 kg

DRUGS (1)
  1. DURAGESIC-100 [Suspect]
     Indication: PAIN
     Dosage: 100UG/HR AND 50UG/HR PATCHES APPLIED TOGETHER
     Route: 062

REACTIONS (2)
  - BREAST CANCER [None]
  - RESUSCITATION [None]
